FAERS Safety Report 11801852 (Version 3)
Quarter: 2015Q4

REPORT INFORMATION
  Report Type: Spontaneous
  Country: PT (occurrence: PT)
  Receive Date: 20151204
  Receipt Date: 20151216
  Transmission Date: 20160305
  Serious: Yes (Life-Threatening)
  Sender: FDA-Public Use
  Company Number: PT-ACTAVIS-2015-26047

PATIENT
  Age: 52 Year
  Sex: Female
  Weight: 95 kg

DRUGS (5)
  1. LEPICORTINOLO [Concomitant]
     Active Substance: PREDNISOLONE
     Indication: ALLERGY PROPHYLAXIS
     Dosage: 120 MG, AS PART OF PREMEDICATION (40 MG IN THE EVENING AND 80 MG ON THE DAY OF TREATMENT)
     Route: 048
     Dates: start: 20151109, end: 20151110
  2. DOCETAXEL ACTAVIS [Suspect]
     Active Substance: DOCETAXEL
     Indication: BREAST CANCER
     Dosage: 75 MG/M2, 1/ THREE WEEKS (DOSING SCHEDULE WITH EPIRUBICIN. CORRESPONDS TO THE 3RD CYCLE)
     Route: 042
     Dates: start: 20151110, end: 20151203
  3. DEXAMETASONA                       /00016001/ [Concomitant]
     Indication: ALLERGY PROPHYLAXIS
     Dosage: 20 MG, DAILY (AS PART OF PREMEDICATION)
     Route: 042
     Dates: start: 20151110, end: 20151110
  4. EPIRRUBICINA [Concomitant]
     Active Substance: EPIRUBICIN
     Indication: BREAST CANCER
     Dosage: UNK, CYCLICAL (3 EPIRUBICIN + DOCETAXEL ADMINISTRATION CYCLE. UNSPECIFIED DOSE)
     Route: 042
     Dates: start: 20151110, end: 20151203
  5. ONDANSETROM                        /00955301/ [Concomitant]
     Indication: ALLERGY PROPHYLAXIS
     Dosage: UNK (AS PART OF PREMEDICATION, 1 AMPOULE ADMINISTERED)
     Route: 042
     Dates: start: 20151110, end: 20151110

REACTIONS (10)
  - Anaphylactic reaction [Recovered/Resolved]
  - Hot flush [Recovered/Resolved]
  - Erythema [Recovered/Resolved]
  - Dysphagia [Recovered/Resolved]
  - Hot flush [Recovered/Resolved]
  - Rash [Recovered/Resolved]
  - Dyspnoea [Recovered/Resolved]
  - Tachycardia [Recovered/Resolved]
  - Anaphylactic reaction [Recovered/Resolved]
  - Chest discomfort [Recovered/Resolved]

NARRATIVE: CASE EVENT DATE: 20151110
